FAERS Safety Report 22628778 (Version 2)
Quarter: 2023Q2

REPORT INFORMATION
  Report Type: Spontaneous
  Country: US (occurrence: US)
  Receive Date: 20230622
  Receipt Date: 20230628
  Transmission Date: 20230722
  Serious: No
  Sender: FDA-Public Use
  Company Number: US-PFIZER INC-PV202300106663

PATIENT
  Age: 15 Year
  Sex: Male
  Weight: 48.08 kg

DRUGS (3)
  1. GENOTROPIN [Suspect]
     Active Substance: SOMATROPIN
     Indication: Growth hormone deficiency
     Dosage: 3 MG, 1X/DAY (AT THE NIGHT TIME. 7 DAYS A WEEK)
  2. TRESIBA [Concomitant]
     Active Substance: INSULIN DEGLUDEC
     Indication: Type 1 diabetes mellitus
     Dosage: 48 IU, 1X/DAY (IN THE MORNING EVERYDAY)
  3. HUMALOG [Concomitant]
     Active Substance: INSULIN LISPRO
     Indication: Type 1 diabetes mellitus
     Dosage: UNK (ABOUT 9 TIMES A DAY)

REACTIONS (5)
  - Poor quality device used [Unknown]
  - Drug dose omission by device [Unknown]
  - Device breakage [Unknown]
  - Device mechanical issue [Unknown]
  - Blood glucose decreased [Unknown]
